FAERS Safety Report 18215236 (Version 2)
Quarter: 2020Q4

REPORT INFORMATION
  Report Type: Spontaneous
  Country: US (occurrence: US)
  Receive Date: 20200831
  Receipt Date: 20201120
  Transmission Date: 20210113
  Serious: No
  Sender: FDA-Public Use
  Company Number: US-ELI_LILLY_AND_COMPANY-US202008003403

PATIENT
  Sex: Female

DRUGS (3)
  1. RETEVMO [Suspect]
     Active Substance: SELPERCATINIB
     Dosage: 80 MG, EACH MORNING
     Route: 065
  2. RETEVMO [Suspect]
     Active Substance: SELPERCATINIB
     Indication: NON-SMALL CELL LUNG CANCER
     Dosage: 160 MG, BID
     Route: 065
  3. RETEVMO [Suspect]
     Active Substance: SELPERCATINIB
     Dosage: 120 MG, EACH EVENING
     Route: 065

REACTIONS (1)
  - Blood creatinine increased [Unknown]
